FAERS Safety Report 11703895 (Version 2)
Quarter: 2021Q2

REPORT INFORMATION
  Report Type: Spontaneous
  Country: US (occurrence: US)
  Receive Date: 20151106
  Receipt Date: 20210507
  Transmission Date: 20210716
  Serious: Yes (Hospitalization, Other)
  Sender: FDA-Public Use
  Company Number: US-AUROBINDO-AUR-APL-2015-09792

PATIENT
  Age: 24 Year
  Sex: Female
  Weight: 79 kg

DRUGS (1)
  1. FLECAINIDE [Suspect]
     Active Substance: FLECAINIDE
     Indication: PRODUCT USED FOR UNKNOWN INDICATION
     Dosage: UNK
     Route: 065

REACTIONS (17)
  - Cardiac arrest [Recovered/Resolved]
  - Hypotension [Recovered/Resolved]
  - Accidental overdose [Recovered/Resolved]
  - Ejection fraction abnormal [Recovered/Resolved]
  - Drug screen positive [Recovered/Resolved]
  - Drug level increased [Recovered/Resolved]
  - Accidental exposure to product [Recovered/Resolved]
  - Generalised tonic-clonic seizure [Recovered/Resolved]
  - Cardiomyopathy [Recovered/Resolved]
  - Condition aggravated [Recovered/Resolved]
  - Sensory loss [Not Recovered/Not Resolved]
  - Compartment syndrome [Recovered/Resolved]
  - Coma [Recovered/Resolved]
  - Somnolence [Recovered/Resolved]
  - Mobility decreased [Not Recovered/Not Resolved]
  - Unresponsive to stimuli [Recovered/Resolved]
  - Arrhythmia [Recovered/Resolved]
